FAERS Safety Report 7365190-X (Version None)
Quarter: 2011Q1

REPORT INFORMATION
  Report Type: 
  Country: None (occurrence: None)
  Receive Date: 20110321
  Receipt Date: 20110307
  Transmission Date: 20110831
  Serious: Yes (Other)
  Sender: FDA-Public Use
  Company Number: IT-MYLANLABS-2011S1004486

PATIENT
  Age: 5 Year
  Sex: Female

DRUGS (1)
  1. METFORMIN [Suspect]
     Indication: ACCIDENTAL DRUG INTAKE BY CHILD
     Route: 048
     Dates: start: 20110213, end: 20110213

REACTIONS (1)
  - ACCIDENTAL DRUG INTAKE BY CHILD [None]
